FAERS Safety Report 14189759 (Version 3)
Quarter: 2018Q3

REPORT INFORMATION
  Report Type: Spontaneous
  Country: EE (occurrence: EE)
  Receive Date: 20171115
  Receipt Date: 20180818
  Transmission Date: 20181010
  Serious: Yes (Other)
  Sender: FDA-Public Use
  Company Number: EE-ROCHE-2019921

PATIENT
  Age: 17 Year
  Sex: Male
  Weight: 76 kg

DRUGS (3)
  1. ROACTEMRA [Suspect]
     Active Substance: TOCILIZUMAB
     Indication: JUVENILE IDIOPATHIC ARTHRITIS
  2. ROACTEMRA [Suspect]
     Active Substance: TOCILIZUMAB
     Indication: JUVENILE IDIOPATHIC ARTHRITIS
     Route: 042
     Dates: start: 20161017, end: 201801
  3. TREXAN (ESTONIA) [Concomitant]
     Active Substance: METHOTREXATE
     Route: 048

REACTIONS (3)
  - Epistaxis [Not Recovered/Not Resolved]
  - Hypofibrinogenaemia [Unknown]
  - Neutropenia [Unknown]

NARRATIVE: CASE EVENT DATE: 2017
